FAERS Safety Report 10428294 (Version 2)
Quarter: 2014Q4

REPORT INFORMATION
  Report Type: Spontaneous
  Country: US (occurrence: None)
  Receive Date: 20140829
  Receipt Date: 20141208
  Transmission Date: 20150528
  Serious: Yes (Hospitalization, Other)
  Sender: FDA-Public Use
  Company Number: 153569

PATIENT
  Age: 70 Year
  Sex: Female
  Weight: 58.51 kg

DRUGS (23)
  1. CYTARABINE (CYTARABINE) [Concomitant]
     Active Substance: CYTARABINE
  2. FUROSEMIDE (FUROSEMIDE) [Concomitant]
     Active Substance: FUROSEMIDE
  3. DAUNORUBICIN HCL INJECTION (DAUNORUBICIN) [Suspect]
     Active Substance: DAUNORUBICIN HYDROCHLORIDE
     Indication: ACUTE MYELOID LEUKAEMIA
     Dosage: CYCLIC
     Route: 040
     Dates: start: 20140518, end: 20140520
  4. MULTIVITAMIN (VIGRAN) (ERGOCALCIFEROL, ASCORBIC ACID, PYRIDOXINE HYDROCHLORIDE, THIAMINE HYDROCHLORIDE, RETINOL, RIOFLAVIN, NICOTOINAMIDE, CALCIUM PANTOTHENATE) [Concomitant]
  5. INSULIN  ASPART (INSULIN ASPART) [Concomitant]
     Active Substance: INSULIN ASPART
  6. VORICONAZOLE (VORICONAZOLE) [Concomitant]
     Active Substance: VORICONAZOLE
  7. ARTIFICIAL TEARS (POLYVINYL ALCOHOL) [Concomitant]
     Active Substance: POLYVINYL ALCOHOL
  8. PANTOPRAZOLE (PANTOPRAZOLE) [Concomitant]
     Active Substance: PANTOPRAZOLE SODIUM
  9. POTASSIUM CHLORIDE (POTASSIUM CHLORIDE) [Concomitant]
     Active Substance: POTASSIUM CHLORIDE
  10. TRIAMCINOLONE (TRIAMCINOLONE) [Concomitant]
  11. ATORVASTATIN (ATORVASTATIN) [Concomitant]
     Active Substance: ATORVASTATIN
  12. GLIMEPIRIDE (GLIMEPIRIDE) [Concomitant]
     Active Substance: GLIMEPIRIDE
  13. NYSTATIN (NYSTATIN) [Concomitant]
     Active Substance: NYSTATIN
  14. OMEPRAZOLE (OMEPRAZOLE) [Concomitant]
     Active Substance: OMEPRAZOLE
  15. CYTARABINE (CYTARABINE) [Suspect]
     Active Substance: CYTARABINE
     Indication: ACUTE MYELOID LEUKAEMIA
     Dates: start: 20140518, end: 20140525
  16. HYDROCORTISONE (HYDROCORTISONE) [Concomitant]
     Active Substance: HYDROCORTISONE
  17. LORAZEPAM (LORAZEPAM) [Concomitant]
     Active Substance: LORAZEPAM
  18. MAGNESIUM SULFATE (MAGNESIUM SULFATE) [Concomitant]
  19. ZOSYN (PIP/TAZO) [Concomitant]
     Active Substance: PIPERACILLIN SODIUM\TAZOBACTAM SODIUM
  20. VALACYCLOVIR (VALACICLOVIR HYDLROCHLORIDE) [Concomitant]
  21. AMLODIPINE [Concomitant]
     Active Substance: AMLODIPINE BESYLATE
  22. OMNIPAQUE (IOHEXOL) [Concomitant]
  23. VANCOMYCIN (VANCOMYCIN) [Concomitant]
     Active Substance: VANCOMYCIN

REACTIONS (12)
  - Platelet count decreased [None]
  - Subdural haematoma [None]
  - Retching [None]
  - Diarrhoea [None]
  - Decreased appetite [None]
  - Rash [None]
  - Headache [None]
  - Dyspnoea exertional [None]
  - Subdural haemorrhage [None]
  - Oedema peripheral [None]
  - Vomiting [None]
  - Asthenia [None]

NARRATIVE: CASE EVENT DATE: 20140616
